FAERS Safety Report 4273952-0 (Version None)
Quarter: 2004Q1

REPORT INFORMATION
  Report Type: 
  Country: None (occurrence: None)
  Receive Date: 20040115
  Receipt Date: 20040105
  Transmission Date: 20041129
  Serious: Yes (Hospitalization)
  Sender: FDA-Public Use
  Company Number: 2004193227FR

PATIENT
  Age: 53 Year
  Sex: Male
  Weight: 47 kg

DRUGS (2)
  1. SOLU-MEDROL [Suspect]
     Dosage: 1 G, QD, FOR THREE DAYS, IV
     Route: 042
  2. ENDOXAN [Concomitant]

REACTIONS (2)
  - DELIRIUM [None]
  - PERSONALITY DISORDER [None]
